FAERS Safety Report 16181120 (Version 1)
Quarter: 2019Q2

REPORT INFORMATION
  Report Type: Spontaneous
  Country: US (occurrence: US)
  Receive Date: 20190410
  Receipt Date: 20190410
  Transmission Date: 20190711
  Serious: Yes (Death, Other)
  Sender: FDA-Public Use
  Company Number: US-ASTRAZENECA-2018SF14475

PATIENT
  Sex: Female

DRUGS (24)
  1. PRILOSEC [Suspect]
     Active Substance: OMEPRAZOLE MAGNESIUM
     Route: 048
  2. FLUTICASONE. [Concomitant]
     Active Substance: FLUTICASONE
  3. MELATONIN [Concomitant]
     Active Substance: MELATONIN
  4. SINGULAIR [Concomitant]
     Active Substance: MONTELUKAST SODIUM
  5. ACCUNEB [Concomitant]
     Active Substance: ALBUTEROL SULFATE
  6. NEXIUM [Suspect]
     Active Substance: ESOMEPRAZOLE MAGNESIUM
     Route: 048
  7. CHOLESTYRAMINE. [Concomitant]
     Active Substance: CHOLESTYRAMINE
  8. FUROSEMIDE. [Concomitant]
     Active Substance: FUROSEMIDE
  9. HYDROCODONE-ACETAMINOPHEN [Concomitant]
     Active Substance: ACETAMINOPHEN\HYDROCODONE
  10. JANTOVEN [Concomitant]
     Active Substance: WARFARIN SODIUM
  11. OLANZAPINE. [Concomitant]
     Active Substance: OLANZAPINE
  12. RIVASTIGMINE. [Concomitant]
     Active Substance: RIVASTIGMINE
  13. CELEBREX [Concomitant]
     Active Substance: CELECOXIB
  14. AMLODIPINE BESYLATE. [Concomitant]
     Active Substance: AMLODIPINE BESYLATE
  15. LORAZEPAM. [Concomitant]
     Active Substance: LORAZEPAM
  16. ASPIRIN. [Concomitant]
     Active Substance: ASPIRIN
  17. LEVOFLOXACIN. [Concomitant]
     Active Substance: LEVOFLOXACIN
  18. PROPYLTHIOURACIL. [Concomitant]
     Active Substance: PROPYLTHIOURACIL
  19. TRAZODONE [Concomitant]
     Active Substance: TRAZODONE HYDROCHLORIDE
  20. METOPROLOL TARTRATE. [Concomitant]
     Active Substance: METOPROLOL TARTRATE
  21. ACETAMINOPHEN. [Concomitant]
     Active Substance: ACETAMINOPHEN
  22. ALBUTEROL. [Concomitant]
     Active Substance: ALBUTEROL
  23. FUROSEMIDE. [Concomitant]
     Active Substance: FUROSEMIDE
  24. TYLENOL [Concomitant]
     Active Substance: ACETAMINOPHEN

REACTIONS (4)
  - Cardiac failure congestive [Fatal]
  - Chronic kidney disease [Unknown]
  - Acute kidney injury [Fatal]
  - End stage renal disease [Unknown]
